FAERS Safety Report 23693537 (Version 1)
Quarter: 2024Q2

REPORT INFORMATION
  Report Type: Spontaneous
  Country: CN (occurrence: None)
  Receive Date: 20240401
  Receipt Date: 20240401
  Transmission Date: 20240716
  Serious: Yes (Life-Threatening)
  Sender: FDA-Public Use
  Company Number: 2024A077048

PATIENT
  Age: 17898 Day
  Sex: Female

DRUGS (5)
  1. PULMICORT TURBUHALER [Suspect]
     Active Substance: BUDESONIDE
     Indication: Productive cough
     Dosage: 1 AMPOULE, TWICE EVERY ONE DAY
     Route: 055
     Dates: start: 20200708, end: 20200711
  2. PULMICORT TURBUHALER [Suspect]
     Active Substance: BUDESONIDE
     Indication: Cough
     Dosage: 1 AMPOULE, TWICE EVERY ONE DAY
     Route: 055
     Dates: start: 20200708, end: 20200711
  3. ATROVENT [Concomitant]
     Active Substance: IPRATROPIUM BROMIDE
     Indication: Productive cough
     Dosage: DOSAGE: 1 AMPOULE, TWICE EVERY ONE DAY
     Route: 055
     Dates: start: 20200708, end: 20200711
  4. ATROVENT [Concomitant]
     Active Substance: IPRATROPIUM BROMIDE
     Indication: Cough
     Dosage: DOSAGE: 1 AMPOULE, TWICE EVERY ONE DAY
     Route: 055
     Dates: start: 20200708, end: 20200711
  5. SODIUM CHLORIDE [Concomitant]
     Active Substance: SODIUM CHLORIDE
     Dosage: 10.0ML UNKNOWN

REACTIONS (1)
  - Seizure [Recovered/Resolved]

NARRATIVE: CASE EVENT DATE: 20200709
